FAERS Safety Report 7918718-2 (Version None)
Quarter: 2011Q4

REPORT INFORMATION
  Report Type: 
  Country: None (occurrence: None)
  Receive Date: 20111116
  Receipt Date: 20111107
  Transmission Date: 20120403
  Serious: Yes (Life-Threatening, Hospitalization)
  Sender: FDA-Public Use
  Company Number: IT-ROCHE-1010568

PATIENT
  Sex: Female
  Weight: 62.5 kg

DRUGS (8)
  1. ASPIRIN [Concomitant]
  2. VYTORIN [Concomitant]
  3. METHOTREXATE [Suspect]
     Indication: RHEUMATOID ARTHRITIS
     Dosage: DATE OF LAST DOSE PRIOR TO SAE: 18 OCTOBER 2011
     Route: 048
     Dates: start: 20091019
  4. LEDERFOLIN [Concomitant]
  5. NEXIUM [Concomitant]
  6. DICLOFENAC SODIUM [Concomitant]
     Dates: start: 20101122
  7. ACTEMRA [Suspect]
     Indication: RHEUMATOID ARTHRITIS
     Dosage: DATE OF LAST DOSE PRIOR TO SAE: 26 SEPTEMBER 2011
     Route: 042
     Dates: start: 20091019
  8. PAROXETINE HYDROCHLORIDE [Concomitant]

REACTIONS (1)
  - ACUTE RESPIRATORY DISTRESS SYNDROME [None]
